FAERS Safety Report 8190575-1 (Version None)
Quarter: 2012Q1

REPORT INFORMATION
  Report Type: 
  Country: None (occurrence: None)
  Receive Date: 20120305
  Receipt Date: 20120223
  Transmission Date: 20120608
  Serious: Yes (Hospitalization, Other)
  Sender: FDA-Public Use
  Company Number: AUR-APL-2012-01115

PATIENT
  Age: 61 Year
  Sex: Female
  Weight: 47.5 kg

DRUGS (11)
  1. ISOSORBIDE MONONITRATE [Concomitant]
  2. ALBUTEROL SULFATE [Concomitant]
  3. NITROGLYCERIN [Concomitant]
  4. MEBEVERINE HYDROCHLORIDE (MEBEVERINE HYDROCHLORIDE) [Concomitant]
  5. CLENIL MODULITE (BECLOMETASONE DIPROPIONATE) [Concomitant]
  6. GABAPENTIN [Concomitant]
  7. TILDEM RETARD (DILTIAZEM HYDROCHLORIDE) [Concomitant]
  8. PAROXETINE HCL [Suspect]
     Indication: ANXIETY
     Dosage: 20 MG, ORAL
     Route: 048
     Dates: start: 20120121, end: 20120121
  9. PAROXETINE HCL [Suspect]
     Indication: DEPRESSION
     Dosage: 20 MG, ORAL
     Route: 048
     Dates: start: 20120121, end: 20120121
  10. RANITIDINE HYDROCHLORIDE [Concomitant]
  11. OMEPRAZOLE [Concomitant]

REACTIONS (4)
  - CHEST PAIN [None]
  - HYPONATRAEMIA [None]
  - THROMBOCYTOPENIA [None]
  - CONTUSION [None]
